FAERS Safety Report 4351742-8 (Version None)
Quarter: 2004Q2

REPORT INFORMATION
  Report Type: 
  Country: None (occurrence: None)
  Receive Date: 20040503
  Receipt Date: 20030825
  Transmission Date: 20050107
  Serious: Yes (Hospitalization, Other)
  Sender: FDA-Public Use
  Company Number: US-GLAXOSMITHKLINE-A0424024A

PATIENT
  Sex: Female

DRUGS (11)
  1. AVANDIA [Suspect]
     Indication: DIABETES MELLITUS NON-INSULIN-DEPENDENT
     Route: 048
  2. INSULIN [Concomitant]
  3. FERROUS SULFATE TAB [Concomitant]
     Dosage: 520MG PER DAY
  4. GLYBURIDE [Concomitant]
     Dosage: 2.5MG PER DAY
  5. ALTACE [Concomitant]
     Dosage: 5MG PER DAY
  6. GLUCOTROL [Concomitant]
     Dosage: 5MG PER DAY
  7. LEVOXYL [Concomitant]
     Dosage: 100MCG PER DAY
  8. PREMARIN [Concomitant]
     Dosage: 1.25MG PER DAY
  9. PROZAC [Concomitant]
     Dosage: 20MG PER DAY
  10. LITHIUM CARBONATE [Concomitant]
     Dosage: 600MG TWICE PER DAY
  11. GLUCOPHAGE [Concomitant]
     Dosage: 500MG THREE TIMES PER DAY

REACTIONS (11)
  - FLUID OVERLOAD [None]
  - FLUID RETENTION [None]
  - HEART INJURY [None]
  - HEPATIC CIRRHOSIS [None]
  - HEPATIC FAILURE [None]
  - HEPATIC STEATOSIS [None]
  - HEPATOCELLULAR DAMAGE [None]
  - HEPATOMEGALY [None]
  - OEDEMA PERIPHERAL [None]
  - PANCYTOPENIA [None]
  - SPLENOMEGALY [None]
